FAERS Safety Report 23784669 (Version 1)
Quarter: 2024Q2

REPORT INFORMATION
  Report Type: Spontaneous
  Country: US (occurrence: US)
  Receive Date: 20240425
  Receipt Date: 20240425
  Transmission Date: 20240716
  Serious: No
  Sender: FDA-Public Use
  Company Number: US-MYLANLABS-2024M1035170

PATIENT
  Age: 66 Year
  Sex: Male
  Weight: 75.3 kg

DRUGS (1)
  1. TYRVAYA [Suspect]
     Active Substance: VARENICLINE TARTRATE
     Indication: Product used for unknown indication
     Dosage: UNK
     Route: 065
     Dates: start: 20240406

REACTIONS (7)
  - Gastrointestinal disorder [Unknown]
  - Feeling abnormal [Unknown]
  - Headache [Unknown]
  - Illness [Unknown]
  - Oesophageal irritation [Unknown]
  - Abdominal discomfort [Unknown]
  - Gastrointestinal pain [Unknown]

NARRATIVE: CASE EVENT DATE: 20240401
